FAERS Safety Report 8104618-4 (Version None)
Quarter: 2012Q1

REPORT INFORMATION
  Report Type: 
  Country: None (occurrence: None)
  Receive Date: 20120130
  Receipt Date: 20120120
  Transmission Date: 20120608
  Serious: Yes (Hospitalization)
  Sender: FDA-Public Use
  Company Number: PHEH2011US07463

PATIENT
  Age: 63 Year
  Sex: Female
  Weight: 62.585 kg

DRUGS (17)
  1. TASIGNA [Suspect]
     Dosage: 400 MG
     Dates: start: 20111001
  2. TASIGNA [Suspect]
     Dosage: 200 MG
  3. CIPROFLOXACIN [Concomitant]
     Dosage: 500 MG,
  4. EMLA [Concomitant]
     Dosage: 2.5 %, UNK
  5. BACTRIM [Concomitant]
     Dosage: 800 MG, UNK
  6. AUGMENTIN '125' [Concomitant]
     Dosage: 500 MG
  7. AUGMENTIN '125' [Concomitant]
     Dosage: 875 MG, UNK
  8. LORTAB [Concomitant]
     Dosage: 500 MG, UNK
  9. PERCOCET [Concomitant]
     Dosage: 325 MG, UNK
  10. TASIGNA [Suspect]
     Indication: CHRONIC MYELOID LEUKAEMIA
     Dosage: 200 MG, DAILY
     Route: 048
     Dates: start: 20110804, end: 20111001
  11. LOVENOX [Concomitant]
     Dosage: UNK UKN, UNK
  12. NORCO [Concomitant]
     Dosage: 325 MG, UNK
  13. ZOCOR [Concomitant]
     Dosage: 400 MG, UNK
  14. NEURONTIN [Concomitant]
     Dosage: 800 MG, UNK
  15. ASPIRIN [Concomitant]
     Dosage: 325 MG
  16. ONDANSETRON HCL [Concomitant]
     Dosage: UNK UKN, UNK
  17. CIPROFLOXACIN [Concomitant]
     Dosage: 500 MG, UNK

REACTIONS (7)
  - RENAL FAILURE [None]
  - PANCYTOPENIA [None]
  - ANAEMIA [None]
  - FULL BLOOD COUNT DECREASED [None]
  - PYREXIA [None]
  - CELLULITIS [None]
  - CHILLS [None]
